FAERS Safety Report 5885952-5 (Version None)
Quarter: 2008Q3

REPORT INFORMATION
  Report Type: 
  Country: None (occurrence: None)
  Receive Date: 20080917
  Receipt Date: 20080911
  Transmission Date: 20090109
  Serious: Yes (Hospitalization)
  Sender: FDA-Public Use
  Company Number: FR-WYE-G02162008

PATIENT
  Sex: Female

DRUGS (4)
  1. ADVIL [Suspect]
     Indication: TOOTHACHE
     Dosage: UNKNOWN
     Route: 048
     Dates: start: 20080518, end: 20080522
  2. LANTUS [Concomitant]
     Indication: TYPE 1 DIABETES MELLITUS
     Route: 058
  3. NOVORAPID [Concomitant]
     Indication: TYPE 1 DIABETES MELLITUS
     Route: 058
     Dates: start: 20080101
  4. PROPOXYPHENE HCL AND ACETAMINOPHEN [Suspect]
     Indication: TOOTHACHE
     Dosage: UNKNOWN
     Route: 048
     Dates: start: 20080518, end: 20080522

REACTIONS (4)
  - BLOOD ALKALINE PHOSPHATASE INCREASED [None]
  - CONSTIPATION [None]
  - HYPERTRIGLYCERIDAEMIA [None]
  - PANCREATITIS ACUTE [None]
